FAERS Safety Report 13383048 (Version 1)
Quarter: 2017Q1

REPORT INFORMATION
  Report Type: Spontaneous
  Country: US (occurrence: US)
  Receive Date: 20170329
  Receipt Date: 20170329
  Transmission Date: 20170429
  Serious: No
  Sender: FDA-Public Use
  Company Number: US-009507513-1703USA011314

PATIENT
  Sex: Female
  Weight: 117.1 kg

DRUGS (1)
  1. NEXPLANON [Suspect]
     Active Substance: ETONOGESTREL
     Indication: CONTRACEPTION
     Dosage: 1 ROD (68 MG) PER 3 YEARS
     Route: 059
     Dates: start: 20161016, end: 20170308

REACTIONS (2)
  - Complication associated with device [Recovered/Resolved]
  - Device kink [Recovered/Resolved]
